FAERS Safety Report 23862116 (Version 1)
Quarter: 2024Q2

REPORT INFORMATION
  Report Type: Report from Study
  Country: US (occurrence: US)
  Receive Date: 20240516
  Receipt Date: 20240516
  Transmission Date: 20240716
  Serious: Yes (Other)
  Sender: FDA-Public Use
  Company Number: US-RECORDATI-2024003421

PATIENT

DRUGS (1)
  1. SIGNIFOR [Suspect]
     Active Substance: PASIREOTIDE DIASPARTATE
     Indication: Product used for unknown indication
     Dosage: UNK

REACTIONS (3)
  - Cognitive disorder [Unknown]
  - Gastrointestinal disorder [Unknown]
  - Nausea [Unknown]
